FAERS Safety Report 10072401 (Version 1)
Quarter: 2014Q2

REPORT INFORMATION
  Report Type: Spontaneous
  Country: US (occurrence: None)
  Receive Date: 20140410
  Receipt Date: 20140410
  Transmission Date: 20141212
  Serious: Yes (Death)
  Sender: FDA-Public Use
  Company Number: None

PATIENT
  Age: 73 Year
  Sex: Male
  Weight: 82.3 kg

DRUGS (1)
  1. RITUXIMAB [Suspect]

REACTIONS (37)
  - Pruritus [None]
  - Infusion related reaction [None]
  - Blood pressure systolic increased [None]
  - No therapeutic response [None]
  - Diarrhoea [None]
  - Hypothermia [None]
  - Skin discolouration [None]
  - Platelet count decreased [None]
  - Shift to the left [None]
  - Blood sodium decreased [None]
  - Blood calcium decreased [None]
  - Pneumothorax [None]
  - Spinal osteoarthritis [None]
  - Septic shock [None]
  - Multi-organ failure [None]
  - Intestinal ischaemia [None]
  - Dehydration [None]
  - Colitis [None]
  - Renal failure [None]
  - Hypogammaglobulinaemia [None]
  - Acute myocardial infarction [None]
  - Gastrooesophageal reflux disease [None]
  - Systemic inflammatory response syndrome [None]
  - Hepatic failure [None]
  - Circulatory collapse [None]
  - Respiratory failure [None]
  - Disseminated intravascular coagulation [None]
  - Lactic acidosis [None]
  - Metabolic acidosis [None]
  - Bronchiectasis [None]
  - Erythema [None]
  - Rash [None]
  - Rash [None]
  - Throat tightness [None]
  - Dysphonia [None]
  - Nasal congestion [None]
  - Troponin increased [None]
